FAERS Safety Report 10967093 (Version 1)
Quarter: 2015Q1

REPORT INFORMATION
  Report Type: Spontaneous
  Country: IN (occurrence: None)
  Receive Date: 20150327
  Receipt Date: 20150327
  Transmission Date: 20150721
  Serious: Yes (Hospitalization)
  Sender: FDA-Public Use
  Company Number: None

PATIENT
  Age: 74 Year
  Sex: Male

DRUGS (4)
  1. VENUSIA [Concomitant]
  2. R-CINEX [Suspect]
     Active Substance: ISONIAZID\RIFAMPIN
     Indication: PULMONARY TUBERCULOSIS
     Dosage: 1 TABLET
     Route: 048
  3. T. DUONEM [Concomitant]
  4. DEPO-MEDROL [Concomitant]
     Active Substance: METHYLPREDNISOLONE ACETATE

REACTIONS (1)
  - Rash erythematous [None]
